FAERS Safety Report 14337436 (Version 12)
Quarter: 2018Q2

REPORT INFORMATION
  Report Type: Report from Study
  Country: ES (occurrence: ES)
  Receive Date: 20171229
  Receipt Date: 20180525
  Transmission Date: 20180711
  Serious: Yes (Hospitalization, Other)
  Sender: FDA-Public Use
  Company Number: ES-PFIZER INC-2017553648

PATIENT
  Age: 73 Year
  Sex: Male

DRUGS (4)
  1. FUROSEMIDA [Interacting]
     Active Substance: FUROSEMIDE
     Indication: ISCHAEMIC CARDIOMYOPATHY
     Dosage: 40 MG, 1X/DAY
     Route: 048
     Dates: end: 20160730
  2. METFORMIN HCL [Interacting]
     Active Substance: METFORMIN HYDROCHLORIDE
     Indication: TYPE 2 DIABETES MELLITUS
     Dosage: 2.55 G, 1X/DAY
     Route: 048
     Dates: start: 201006, end: 20160730
  3. ACOVIL [Suspect]
     Active Substance: RAMIPRIL
     Indication: ISCHAEMIC CARDIOMYOPATHY
     Dosage: 5.0 MG, 1X/DAY
     Route: 048
     Dates: start: 20150101, end: 20171215
  4. EPLERENONE. [Interacting]
     Active Substance: EPLERENONE
     Indication: ISCHAEMIC CARDIOMYOPATHY
     Dosage: 25 MG, 1X/DAY
     Route: 048
     Dates: start: 20150710, end: 20160730

REACTIONS (3)
  - Lactic acidosis [Recovered/Resolved]
  - Acute kidney injury [Recovered/Resolved]
  - Drug interaction [Recovered/Resolved]

NARRATIVE: CASE EVENT DATE: 20160729
